FAERS Safety Report 9775886 (Version 1)
Quarter: 2013Q4

REPORT INFORMATION
  Report Type: Spontaneous
  Country: CH (occurrence: CH)
  Receive Date: 20131220
  Receipt Date: 20131220
  Transmission Date: 20140711
  Serious: Yes (Hospitalization)
  Sender: FDA-Public Use
  Company Number: CH-GLAXOSMITHKLINE-B0953552A

PATIENT
  Age: 45 Year
  Sex: Male

DRUGS (5)
  1. SUMATRIPTAN [Suspect]
     Indication: MIGRAINE
     Dosage: 50MG PER DAY
     Route: 065
  2. VENLAFAXINE [Suspect]
     Indication: DEPRESSION
     Dosage: 75MG PER DAY
     Route: 065
  3. CODEINE [Concomitant]
  4. PARACETAMOL [Concomitant]
  5. DIPYRONE [Concomitant]

REACTIONS (11)
  - Serotonin syndrome [Unknown]
  - Accidental overdose [Unknown]
  - Muscle twitching [Unknown]
  - Myoclonus [Unknown]
  - Tachycardia [Unknown]
  - Hypertension [Unknown]
  - Dyskinesia [Unknown]
  - Hypercalcaemia [Unknown]
  - Alanine aminotransferase increased [Unknown]
  - Gamma-glutamyltransferase increased [Unknown]
  - Drug interaction [Unknown]
